FAERS Safety Report 8961358 (Version 1)
Quarter: 2012Q4

REPORT INFORMATION
  Report Type: 
  Country: AU (occurrence: AU)
  Receive Date: 20121212
  Receipt Date: 20121212
  Transmission Date: 20130627
  Serious: Yes (Other)
  Sender: FDA-Public Use
  Company Number: AU-BAXTER-2012BAX025774

PATIENT
  Sex: Female

DRUGS (2)
  1. SODIUM CHLORIDE [Suspect]
     Indication: MEDICATION DILUTION
     Route: 042
     Dates: start: 20121116, end: 20121116
  2. DOCETAXEL [Suspect]
     Indication: CHEMOTHERAPY
     Route: 042
     Dates: start: 20121116, end: 20121116

REACTIONS (5)
  - Flushing [Recovered/Resolved]
  - Emotional distress [Recovered/Resolved]
  - Dyspnoea [Recovered/Resolved]
  - Blood pressure increased [None]
  - Infusion related reaction [None]
